FAERS Safety Report 5936487-2 (Version None)
Quarter: 2008Q4

REPORT INFORMATION
  Report Type: 
  Country: None (occurrence: None)
  Receive Date: 20081030
  Receipt Date: 20081021
  Transmission Date: 20090506
  Serious: Yes (Death, Other)
  Sender: FDA-Public Use
  Company Number: DE-AMGEN-UK306978

PATIENT
  Sex: Female
  Weight: 40 kg

DRUGS (2)
  1. VECTIBIX [Suspect]
     Indication: DRUG USE FOR UNKNOWN INDICATION
  2. DEXAMETHASONE [Concomitant]

REACTIONS (5)
  - DEATH [None]
  - DERMATITIS ACNEIFORM [None]
  - MALIGNANT NEOPLASM PROGRESSION [None]
  - NEURALGIA [None]
  - RASH [None]
